FAERS Safety Report 8165325-5 (Version None)
Quarter: 2012Q1

REPORT INFORMATION
  Report Type: 
  Country: None (occurrence: None)
  Receive Date: 20120222
  Receipt Date: 20120222
  Transmission Date: 20120608
  Serious: Yes (Hospitalization)
  Sender: FDA-Public Use
  Company Number: None

PATIENT
  Sex: Female
  Weight: 58.9676 kg

DRUGS (1)
  1. WARFARIN SODIUM [Suspect]
     Indication: PERIPHERAL VASCULAR DISORDER
     Dates: start: 20120101

REACTIONS (1)
  - VASCULAR GRAFT THROMBOSIS [None]
